FAERS Safety Report 6786090-X (Version None)
Quarter: 2010Q2

REPORT INFORMATION
  Report Type: 
  Country: None (occurrence: None)
  Receive Date: 20100623
  Receipt Date: 20100615
  Transmission Date: 20101027
  Serious: Yes (Hospitalization, Disabling)
  Sender: FDA-Public Use
  Company Number: PHHO2009SE09918

PATIENT
  Sex: Male
  Weight: 80 kg

DRUGS (5)
  1. CERTICAN [Suspect]
     Indication: RENAL TRANSPLANT
     Dosage: 3 MG, BID
     Route: 048
     Dates: start: 20081216, end: 20090911
  2. SANDIMMUNE [Concomitant]
  3. MYFORTIC [Concomitant]
     Indication: RENAL TRANSPLANT
     Dosage: 540 MG, BID
     Route: 048
     Dates: start: 20081018
  4. PREDNISOLONE [Concomitant]
     Indication: RENAL TRANSPLANT
     Dosage: 7.5 MG, QD
     Route: 048
     Dates: start: 20081018
  5. NOVOMIX [Concomitant]
     Indication: DIABETES MELLITUS
     Dosage: 94 IU / DAY
     Route: 058
     Dates: start: 20070911

REACTIONS (6)
  - DIABETES MELLITUS [None]
  - ENTEROBACTER TEST POSITIVE [None]
  - EXTREMITY NECROSIS [None]
  - GANGRENE [None]
  - LEG AMPUTATION [None]
  - POSTOPERATIVE WOUND INFECTION [None]
